FAERS Safety Report 7178233-3 (Version None)
Quarter: 2010Q4

REPORT INFORMATION
  Report Type: 
  Country: None (occurrence: None)
  Receive Date: 20101220
  Receipt Date: 20101119
  Transmission Date: 20110411
  Serious: Yes (Death, Other)
  Sender: FDA-Public Use
  Company Number: US-BAXTER-2010BH003169

PATIENT
  Age: 64 Year
  Sex: Female

DRUGS (10)
  1. HEPARIN SODIUM INJECTION [Suspect]
     Indication: PERITONEAL DIALYSIS
     Route: 033
     Dates: start: 20080203, end: 20080214
  2. HEPARIN SODIUM INJECTION [Suspect]
     Route: 042
     Dates: start: 20070501, end: 20070701
  3. HEPARIN SODIUM INJECTION [Suspect]
     Route: 065
     Dates: start: 20070118, end: 20070720
  4. SODIUM CHLORIDE 0.9% IN PLASTIC CONTAINER [Concomitant]
     Indication: PRODUCT USED FOR UNKNOWN INDICATION
     Route: 051
  5. AMIODARONE HCL [Concomitant]
     Indication: PRODUCT USED FOR UNKNOWN INDICATION
     Route: 065
  6. AMIKACIN [Concomitant]
     Indication: PRODUCT USED FOR UNKNOWN INDICATION
     Route: 042
  7. EPOETIN ALFA [Concomitant]
     Indication: PRODUCT USED FOR UNKNOWN INDICATION
     Route: 065
  8. AZITHROMYCIN [Concomitant]
     Indication: PRODUCT USED FOR UNKNOWN INDICATION
     Route: 065
  9. LEVOPHED [Concomitant]
     Indication: PRODUCT USED FOR UNKNOWN INDICATION
     Route: 042
  10. NEO-SYNEPHRINOL [Concomitant]
     Indication: PRODUCT USED FOR UNKNOWN INDICATION
     Route: 042

REACTIONS (8)
  - ARTERIOSCLEROSIS [None]
  - CALCIPHYLAXIS [None]
  - CARDIOGENIC SHOCK [None]
  - CARDIOMYOPATHY [None]
  - PNEUMONIA [None]
  - PULMONARY HYPERTENSION [None]
  - RENAL FAILURE CHRONIC [None]
  - TROPONIN INCREASED [None]
